FAERS Safety Report 4943917-1 (Version None)
Quarter: 2006Q1

REPORT INFORMATION
  Report Type: 
  Country: None (occurrence: None)
  Receive Date: 20060313
  Receipt Date: 20060313
  Transmission Date: 20060701
  Serious: Yes (Life-Threatening, Hospitalization)
  Sender: FDA-Public Use
  Company Number: None

PATIENT
  Age: 86 Year
  Sex: Female
  Weight: 49 kg

DRUGS (2)
  1. DIGOXIN [Suspect]
     Indication: CARDIAC FAILURE CONGESTIVE
     Dosage: 0.125MG DAILY
  2. METOPROLOL  25MG [Suspect]
     Indication: HYPERTENSION
     Dosage: METOPROLOL 25MG DAILY

REACTIONS (5)
  - BLOOD GLUCOSE DECREASED [None]
  - HEART RATE DECREASED [None]
  - HYPERCALCAEMIA [None]
  - HYPONATRAEMIA [None]
  - RENAL FAILURE ACUTE [None]
